FAERS Safety Report 7314198-9 (Version None)
Quarter: 2011Q1

REPORT INFORMATION
  Report Type: 
  Country: None (occurrence: None)
  Receive Date: 20110225
  Receipt Date: 20100625
  Transmission Date: 20110831
  Serious: No
  Sender: FDA-Public Use
  Company Number: US-MYLANLABS-2010S1010040

PATIENT
  Age: 15 Year
  Sex: Female
  Weight: 61.24 kg

DRUGS (2)
  1. AMNESTEEM [Suspect]
     Dates: start: 20100503
  2. AMNESTEEM [Suspect]
     Indication: ACNE
     Dates: start: 20100503

REACTIONS (1)
  - DYSMENORRHOEA [None]
